FAERS Safety Report 4474282-4 (Version None)
Quarter: 2004Q4

REPORT INFORMATION
  Report Type: 
  Country: None (occurrence: None)
  Receive Date: 20041014
  Receipt Date: 20040510
  Transmission Date: 20050328
  Serious: Yes (Life-Threatening, Hospitalization, Congenital Anomaly)
  Sender: FDA-Public Use
  Company Number: FR-ROCHE-367051

PATIENT
  Age: 1 Hour
  Sex: Male
  Weight: 2.1 kg

DRUGS (2)
  1. NICARDIPINE HCL [Suspect]
     Route: 064
  2. TEGRETOL [Suspect]
     Indication: DRUG USE FOR UNKNOWN INDICATION
     Route: 064

REACTIONS (18)
  - ANDROGEN DEFICIENCY [None]
  - APGAR SCORE LOW [None]
  - ASCITES [None]
  - CEREBELLAR HYPOPLASIA [None]
  - CONGENITAL NEUROLOGICAL DISORDER [None]
  - DRUG EXPOSURE DURING PREGNANCY [None]
  - FACIAL DYSMORPHISM [None]
  - GASTROINTESTINAL DISORDER CONGENITAL [None]
  - HEPATOCELLULAR DAMAGE NEONATAL [None]
  - HYPOTONIA NEONATAL [None]
  - LUNG DISORDER [None]
  - MULTIPLE CONGENITAL ABNORMALITIES [None]
  - MYOCARDITIS [None]
  - PERICARDIAL EFFUSION [None]
  - PLEURAL EFFUSION [None]
  - PULMONARY HYPOPLASIA [None]
  - SEPSIS [None]
  - SERRATIA INFECTION [None]
